FAERS Safety Report 25368552 (Version 3)
Quarter: 2025Q3

REPORT INFORMATION
  Report Type: Spontaneous
  Country: EU (occurrence: EU)
  Receive Date: 20250528
  Receipt Date: 20250702
  Transmission Date: 20251020
  Serious: Yes (Other)
  Sender: PFIZER
  Company Number: EU-INCYTE CORPORATION-2025IN003723

PATIENT
  Age: 47 Year
  Sex: Female

DRUGS (13)
  1. CYTARABINE [Suspect]
     Active Substance: CYTARABINE
  2. CYTARABINE [Suspect]
     Active Substance: CYTARABINE
     Dates: start: 20250205
  3. CYTARABINE [Suspect]
     Active Substance: CYTARABINE
     Dates: start: 20250212
  4. CYTARABINE [Suspect]
     Active Substance: CYTARABINE
     Dates: start: 20250321
  5. METHOTREXATE SODIUM [Suspect]
     Active Substance: METHOTREXATE SODIUM
     Dates: start: 20250212
  6. METHOTREXATE SODIUM [Suspect]
     Active Substance: METHOTREXATE SODIUM
     Dates: start: 20250316
  7. METHOTREXATE SODIUM [Suspect]
     Active Substance: METHOTREXATE SODIUM
     Dates: start: 20250321
  8. ICLUSIG [Suspect]
     Active Substance: PONATINIB HYDROCHLORIDE
     Indication: Philadelphia positive acute lymphocytic leukaemia
     Dates: start: 20241019, end: 20250107
  9. ICLUSIG [Suspect]
     Active Substance: PONATINIB HYDROCHLORIDE
     Dosage: 15 MG, 1X/DAY
     Dates: start: 20250213, end: 20250321
  10. DAPTOMYCIN [Suspect]
     Active Substance: DAPTOMYCIN
     Indication: Staphylococcal bacteraemia
     Dates: start: 20241229, end: 20250111
  11. DAPTOMYCIN [Suspect]
     Active Substance: DAPTOMYCIN
     Indication: Device related bacteraemia
  12. HYDROCORTISONE [Concomitant]
     Active Substance: HYDROCORTISONE
     Dates: start: 20250212
  13. HYDROCORTISONE [Concomitant]
     Active Substance: HYDROCORTISONE
     Dates: start: 20250321

REACTIONS (7)
  - Device related bacteraemia [Unknown]
  - Staphylococcal bacteraemia [Unknown]
  - Hepatotoxicity [Recovered/Resolved]
  - Pericardial effusion [Unknown]
  - Platelet count abnormal [Unknown]
  - Haemoglobin decreased [Unknown]
  - Rash [Recovered/Resolved]

NARRATIVE: CASE EVENT DATE: 20250103
